FAERS Safety Report 20635340 (Version 1)
Quarter: 2022Q1

REPORT INFORMATION
  Report Type: Other
  Country: CA (occurrence: CA)
  Receive Date: 20220325
  Receipt Date: 20220325
  Transmission Date: 20220424
  Serious: Yes (Other)
  Sender: FDA-Public Use
  Company Number: CA-APOTEX-2022AP005018

PATIENT
  Age: 22 Year
  Sex: Female

DRUGS (1)
  1. LITHIUM [Suspect]
     Active Substance: LITHIUM
     Indication: Borderline personality disorder
     Dosage: UNK
     Route: 048

REACTIONS (4)
  - Accidental poisoning [Unknown]
  - Heart rate increased [Unknown]
  - Intention tremor [Unknown]
  - Toxicity to various agents [Unknown]
